FAERS Safety Report 20296189 (Version 1)
Quarter: 2022Q1

REPORT INFORMATION
  Report Type: Spontaneous
  Country: US (occurrence: None)
  Receive Date: 20220105
  Receipt Date: 20220105
  Transmission Date: 20220424
  Serious: No
  Sender: FDA-Public Use
  Company Number: 2021A886628

PATIENT
  Sex: Male
  Weight: 101.6 kg

DRUGS (1)
  1. SYMBICORT [Suspect]
     Active Substance: BUDESONIDE\FORMOTEROL FUMARATE DIHYDRATE
     Indication: Chronic obstructive pulmonary disease
     Dosage: 160/4.5 MCG TWO RESPIRATORY INHALATIONS TWICE A DAY
     Route: 055

REACTIONS (6)
  - Chest discomfort [Unknown]
  - Fatigue [Unknown]
  - Dyspnoea [Unknown]
  - Vocal cord paralysis [Unknown]
  - Intentional device misuse [Unknown]
  - Product dose omission in error [Unknown]
